FAERS Safety Report 9886799 (Version 2)
Quarter: 2014Q1

REPORT INFORMATION
  Report Type: Spontaneous
  Country: US (occurrence: US)
  Receive Date: 20140210
  Receipt Date: 20140320
  Transmission Date: 20141002
  Serious: Yes (Hospitalization, Other)
  Sender: FDA-Public Use
  Company Number: US-GILEAD-2014-0094158

PATIENT
  Sex: Female

DRUGS (18)
  1. LETAIRIS [Suspect]
     Indication: PULMONARY HYPERTENSION
     Dosage: 2.5 MG, QD
     Route: 065
     Dates: start: 20120119, end: 20140206
  2. TYVASO [Concomitant]
  3. ADCIRCA [Concomitant]
  4. CALCIUM [Concomitant]
  5. MULTIVITAMIN                       /07504101/ [Concomitant]
  6. POTASSIUM [Concomitant]
  7. TOPAMAX [Concomitant]
  8. LEVOTHYROXINE [Concomitant]
  9. NEURONTIN [Concomitant]
  10. NORVASC [Concomitant]
  11. COUMADIN                           /00014802/ [Concomitant]
  12. LAMICTAL [Concomitant]
  13. SEROQUEL [Concomitant]
  14. SPIRONOLACTONE [Concomitant]
  15. EFFEXOR [Concomitant]
  16. PROTONIX [Concomitant]
  17. LASIX                              /00032601/ [Concomitant]
  18. CARAFATE [Concomitant]

REACTIONS (3)
  - Cardiac failure congestive [Unknown]
  - Anaemia [Unknown]
  - Headache [Not Recovered/Not Resolved]
